FAERS Safety Report 6794444-0 (Version None)
Quarter: 2010Q2

REPORT INFORMATION
  Report Type: 
  Country: None (occurrence: None)
  Receive Date: 20100625
  Receipt Date: 20100621
  Transmission Date: 20101027
  Serious: Yes (Disabling, Other)
  Sender: FDA-Public Use
  Company Number: FR-TEVA-238484ISR

PATIENT
  Age: 50 Year
  Sex: Male

DRUGS (7)
  1. ETOPOSIDE [Suspect]
     Indication: ADULT T-CELL LYMPHOMA/LEUKAEMIA
  2. DOXORUBICIN HCL [Suspect]
     Indication: ADULT T-CELL LYMPHOMA/LEUKAEMIA
  3. VINCRISTINE [Suspect]
     Indication: ADULT T-CELL LYMPHOMA/LEUKAEMIA
  4. METHOTREXATE [Suspect]
  5. INTERFERON ALFA-2B [Suspect]
  6. CYCLOPHOSPHAMIDE [Suspect]
     Indication: ADULT T-CELL LYMPHOMA/LEUKAEMIA
  7. DEXAMETHASONE [Suspect]
     Indication: ADULT T-CELL LYMPHOMA/LEUKAEMIA

REACTIONS (1)
  - TUMOUR LYSIS SYNDROME [None]
